FAERS Safety Report 19452589 (Version 1)
Quarter: 2021Q2

REPORT INFORMATION
  Report Type: Spontaneous
  Country: US (occurrence: US)
  Receive Date: 20210623
  Receipt Date: 20210623
  Transmission Date: 20210717
  Serious: No
  Sender: FDA-Public Use
  Company Number: US-SA-2021SA204543

PATIENT
  Age: 87 Year
  Sex: Female

DRUGS (8)
  1. LEVOTHYROXIN [Concomitant]
     Active Substance: LEVOTHYROXINE
  2. DUPIXENT [Suspect]
     Active Substance: DUPILUMAB
     Indication: DERMATITIS ATOPIC
     Dosage: 300 MG, QOW
     Route: 058
     Dates: start: 20210202
  3. RESTASIS [Concomitant]
     Active Substance: CYCLOSPORINE
  4. LATANOPROST. [Concomitant]
     Active Substance: LATANOPROST
  5. DORZOLAMIDE [Concomitant]
     Active Substance: DORZOLAMIDE
  6. FLUDROCORTISONE [Concomitant]
     Active Substance: FLUDROCORTISONE
  7. CLOTRIM?B [BECLOMETASONE DIPROPIONATE;CLOTRIMAZOLE] [Concomitant]
  8. BRIMONIDINE [Concomitant]
     Active Substance: BRIMONIDINE TARTRATE

REACTIONS (7)
  - Skin exfoliation [Unknown]
  - Discomfort [Unknown]
  - Dermatitis atopic [Unknown]
  - Swelling [Unknown]
  - Pruritus [Unknown]
  - Infection [Unknown]
  - Rash [Unknown]

NARRATIVE: CASE EVENT DATE: 202106
